FAERS Safety Report 10221673 (Version 1)
Quarter: 2014Q2

REPORT INFORMATION
  Report Type: Spontaneous
  Country: US (occurrence: US)
  Receive Date: 20140606
  Receipt Date: 20140606
  Transmission Date: 20141212
  Serious: No
  Sender: FDA-Public Use
  Company Number: US-PFIZER INC-2014156090

PATIENT
  Age: 78 Year
  Sex: Female
  Weight: 64.4 kg

DRUGS (3)
  1. LYRICA [Suspect]
     Indication: POST HERPETIC NEURALGIA
     Dosage: 50 MG, 3X/DAY
  2. LYRICA [Suspect]
     Indication: NEUROPATHY PERIPHERAL
  3. CARVEDILOL [Concomitant]
     Indication: HYPERTENSION
     Dosage: (12.5 MG IN THE MORNING AND 6.25 MG IN THE NIGHT), 2X/DAY

REACTIONS (3)
  - Dizziness [Unknown]
  - Nausea [Unknown]
  - Vertigo [Unknown]
